FAERS Safety Report 13094828 (Version 1)
Quarter: 2017Q1

REPORT INFORMATION
  Report Type: Spontaneous
  Country: US (occurrence: US)
  Receive Date: 20170106
  Receipt Date: 20170106
  Transmission Date: 20170428
  Serious: Yes (Other)
  Sender: FDA-Public Use
  Company Number: US-PRESTIGE BRANDS -1061660

PATIENT
  Sex: Female

DRUGS (1)
  1. BC (ASPIRIN\CAFFEINE) [Suspect]
     Active Substance: ASPIRIN\CAFFEINE
     Route: 048
     Dates: start: 20161218, end: 20161218

REACTIONS (9)
  - Blood pressure increased [Unknown]
  - Intentional product misuse [Unknown]
  - Hot flush [Unknown]
  - Tremor [Not Recovered/Not Resolved]
  - Energy increased [Unknown]
  - Heart rate increased [Unknown]
  - Fatigue [Unknown]
  - Hallucination [Recovered/Resolved]
  - Sleep disorder [Unknown]

NARRATIVE: CASE EVENT DATE: 20161218
